FAERS Safety Report 18533493 (Version 1)
Quarter: 2020Q4

REPORT INFORMATION
  Report Type: Spontaneous
  Country: US (occurrence: US)
  Receive Date: 20201120
  Receipt Date: 20201120
  Transmission Date: 20210114
  Serious: Yes (Other)
  Sender: FDA-Public Use
  Company Number: None

PATIENT
  Age: 78 Year
  Sex: Female
  Weight: 66.68 kg

DRUGS (1)
  1. ATEZOLIZUMAB 1200MG [Suspect]
     Active Substance: ATEZOLIZUMAB
     Indication: NON-SMALL CELL LUNG CANCER METASTATIC
     Dosage: ?          OTHER FREQUENCY:EVERY 3 WEEKS;?
     Route: 042
     Dates: start: 20200611, end: 20201104

REACTIONS (4)
  - Bacteraemia [None]
  - Urinary retention [None]
  - Cystitis [None]
  - Staphylococcal infection [None]

NARRATIVE: CASE EVENT DATE: 20200830
